FAERS Safety Report 10136478 (Version 1)
Quarter: 2014Q2

REPORT INFORMATION
  Report Type: Spontaneous
  Country: US (occurrence: None)
  Receive Date: 20140428
  Receipt Date: 20140428
  Transmission Date: 20141212
  Serious: Yes (Life-Threatening, Hospitalization)
  Sender: FDA-Public Use
  Company Number: None

PATIENT
  Age: 51 Year
  Sex: Female

DRUGS (2)
  1. RIBAVIRIN [Suspect]
     Dosage: TAKE 2 TABLETS BY MOUTH TWICE A DAY
     Route: 048
     Dates: start: 20140317
  2. SOVALDI 400MG TABLET [Concomitant]

REACTIONS (3)
  - Stevens-Johnson syndrome [None]
  - Influenza like illness [None]
  - Asthma [None]
